FAERS Safety Report 19791416 (Version 15)
Quarter: 2022Q4

REPORT INFORMATION
  Report Type: Report from Study
  Country: CO (occurrence: CO)
  Receive Date: 20210906
  Receipt Date: 20221018
  Transmission Date: 20230113
  Serious: Yes (Other)
  Sender: FDA-Public Use
  Company Number: CO-ABBVIE-21K-036-4068497-00

PATIENT
  Sex: Female
  Weight: 70 kg

DRUGS (21)
  1. HUMIRA [Suspect]
     Active Substance: ADALIMUMAB
     Indication: Rheumatoid arthritis
     Dosage: 40 MG
     Route: 058
     Dates: start: 20180717, end: 20211202
  2. HUMIRA [Suspect]
     Active Substance: ADALIMUMAB
     Dosage: 40 MG
     Route: 058
  3. NAPROXEN [Suspect]
     Active Substance: NAPROXEN
     Indication: Pain management
     Route: 048
     Dates: start: 202107, end: 202107
  4. ZALDIAR [Concomitant]
     Active Substance: ACETAMINOPHEN\TRAMADOL HYDROCHLORIDE
     Indication: Gait disturbance
     Dosage: 2 DOSAGE FORMS
     Route: 048
     Dates: start: 2020
  5. COVID-19 VACCINE NOS [Suspect]
     Active Substance: COVID-19 VACCINE NOS
     Indication: COVID-19 immunisation
     Dosage: 1ST DOSE 1 IN ONCE
     Route: 030
     Dates: start: 20210831, end: 20210831
  6. CARBAMAZEPINE [Suspect]
     Active Substance: CARBAMAZEPINE
     Indication: Product used for unknown indication
     Dosage: 1 WEEKLY
     Route: 065
  7. ADALIMUMAB [Suspect]
     Active Substance: ADALIMUMAB
     Indication: Rheumatoid arthritis
     Dosage: 2 DAILY
     Route: 058
     Dates: start: 202204
  8. PREDNISOLONE [Concomitant]
     Active Substance: PREDNISOLONE
     Indication: Rheumatoid arthritis
     Dosage: 2 PER DAY SOMETIMES 1 IF THE PAIN IS NOT STRONG
     Route: 048
     Dates: start: 1982
  9. LEFLUNOMIDE [Concomitant]
     Active Substance: LEFLUNOMIDE
     Indication: Adverse event
     Route: 048
  10. TRAMADOL ACETAMINOFEN [Concomitant]
     Indication: Product used for unknown indication
  11. CALTRATE [Concomitant]
     Active Substance: CALCIUM CARBONATE
     Indication: Product used for unknown indication
  12. ESOMEPRAZOLE [Concomitant]
     Active Substance: ESOMEPRAZOLE
     Indication: Gastric ulcer
     Dosage: 2 DOSAGE FORMS
     Route: 048
     Dates: start: 1992
  13. CALCIUM [Concomitant]
     Active Substance: CALCIUM
     Indication: Rheumatoid arthritis
     Dosage: BEFORE STARTING HUMIRA?600
     Route: 048
     Dates: start: 202203
  14. CALCITRIOL [Concomitant]
     Active Substance: CALCITRIOL
     Indication: Product used for unknown indication
     Dosage: 1 DAILY?BEFORE STARTING HUMIRA
     Route: 048
  15. LOSARTAN [Concomitant]
     Active Substance: LOSARTAN
     Indication: Product used for unknown indication
     Route: 048
     Dates: start: 2021
  16. LOSARTAN [Concomitant]
     Active Substance: LOSARTAN
     Indication: Product used for unknown indication
     Dosage: 20 - 25 MG
     Route: 048
  17. FOLIC ACID [Concomitant]
     Active Substance: FOLIC ACID
     Indication: Product used for unknown indication
     Dosage: 1 DOSAGE FORMS
     Route: 048
  18. METHOTREXATE [Concomitant]
     Active Substance: METHOTREXATE
     Indication: Product used for unknown indication
     Route: 048
     Dates: end: 2021
  19. TRAMADOL [Concomitant]
     Active Substance: TRAMADOL
     Indication: Product used for unknown indication
     Dosage: 1 DOSAGE FORMS
     Route: 048
     Dates: start: 2021
  20. DICLOFENAC [Concomitant]
     Active Substance: DICLOFENAC
     Indication: Product used for unknown indication
     Route: 048
     Dates: start: 2021
  21. ZOLEDRONIC ACID [Concomitant]
     Active Substance: ZOLEDRONIC ACID
     Indication: Product used for unknown indication
     Dosage: 4 INJECTION IN TOTAL

REACTIONS (69)
  - Amnesia [Not Recovered/Not Resolved]
  - Coagulopathy [Recovering/Resolving]
  - Musculoskeletal discomfort [Not Recovered/Not Resolved]
  - Blindness [Not Recovered/Not Resolved]
  - Visual impairment [Not Recovered/Not Resolved]
  - Walking disability [Not Recovered/Not Resolved]
  - Thrombosis [Recovered/Resolved]
  - Discouragement [Not Recovered/Not Resolved]
  - Chills [Recovered/Resolved]
  - Dysstasia [Not Recovered/Not Resolved]
  - Arthropathy [Recovering/Resolving]
  - Malaise [Recovered/Resolved]
  - Joint swelling [Unknown]
  - Gait disturbance [Not Recovered/Not Resolved]
  - Skin discolouration [Not Recovered/Not Resolved]
  - Somnolence [Not Recovered/Not Resolved]
  - Visual acuity reduced [Unknown]
  - Loss of personal independence in daily activities [Not Recovered/Not Resolved]
  - Migraine [Recovered/Resolved]
  - Drug level decreased [Not Recovered/Not Resolved]
  - Oral mucosal exfoliation [Recovering/Resolving]
  - Initial insomnia [Unknown]
  - Arthropathy [Not Recovered/Not Resolved]
  - Somnolence [Not Recovered/Not Resolved]
  - Joint stiffness [Unknown]
  - Joint range of motion decreased [Unknown]
  - Gastritis [Recovering/Resolving]
  - Inflammation [Not Recovered/Not Resolved]
  - Oropharyngeal discomfort [Not Recovered/Not Resolved]
  - Insomnia [Recovering/Resolving]
  - Musculoskeletal stiffness [Not Recovered/Not Resolved]
  - Vision blurred [Recovered/Resolved]
  - Arthritis [Not Recovered/Not Resolved]
  - Cough [Recovering/Resolving]
  - Bedridden [Recovering/Resolving]
  - Underdose [Recovered/Resolved]
  - Hypertension [Recovering/Resolving]
  - Chest pain [Recovering/Resolving]
  - Musculoskeletal chest pain [Recovering/Resolving]
  - Chikungunya virus infection [Recovered/Resolved]
  - Pyrexia [Recovered/Resolved]
  - Back pain [Recovering/Resolving]
  - Zika virus infection [Recovered/Resolved]
  - Bone pain [Not Recovered/Not Resolved]
  - Pain [Recovered/Resolved]
  - Renal pain [Recovering/Resolving]
  - Arthralgia [Not Recovered/Not Resolved]
  - Pain in extremity [Not Recovered/Not Resolved]
  - Pain [Recovering/Resolving]
  - Pain of skin [Recovered/Resolved]
  - Pyrexia [Recovering/Resolving]
  - Abdominal pain upper [Recovering/Resolving]
  - Gastrointestinal pain [Recovering/Resolving]
  - Musculoskeletal discomfort [Not Recovered/Not Resolved]
  - Limb discomfort [Not Recovered/Not Resolved]
  - Peripheral swelling [Not Recovered/Not Resolved]
  - Influenza like illness [Recovered/Resolved]
  - Dysphonia [Recovered/Resolved]
  - Eye disorder [Recovered/Resolved]
  - Visual impairment [Recovered/Resolved]
  - Nausea [Recovered/Resolved]
  - Discomfort [Recovered/Resolved]
  - Bone disorder [Not Recovered/Not Resolved]
  - Migraine [Not Recovered/Not Resolved]
  - Malaise [Recovered/Resolved]
  - Spinal pain [Not Recovered/Not Resolved]
  - Pain [Not Recovered/Not Resolved]
  - Paraesthesia [Not Recovered/Not Resolved]
  - Musculoskeletal disorder [Not Recovered/Not Resolved]

NARRATIVE: CASE EVENT DATE: 20180101
